FAERS Safety Report 5501908-6 (Version None)
Quarter: 2007Q4

REPORT INFORMATION
  Report Type: 
  Country: None (occurrence: None)
  Receive Date: 20071030
  Receipt Date: 20071018
  Transmission Date: 20080405
  Serious: Yes (Hospitalization, Other)
  Sender: FDA-Public Use
  Company Number: JP-ROCHE-506084

PATIENT
  Age: 16 Year
  Sex: Female

DRUGS (21)
  1. MYCOPHENOLATE MOFETIL [Suspect]
     Route: 048
     Dates: start: 20060101
  2. MYCOPHENOLATE MOFETIL [Suspect]
     Route: 048
     Dates: start: 20060127, end: 20060130
  3. MYCOPHENOLATE MOFETIL [Suspect]
     Route: 048
     Dates: start: 20060131, end: 20060131
  4. MYCOPHENOLATE MOFETIL [Suspect]
     Route: 048
     Dates: start: 20060201, end: 20060427
  5. MYCOPHENOLATE MOFETIL [Suspect]
     Route: 048
     Dates: start: 20060428
  6. MYCOPHENOLATE MOFETIL [Suspect]
     Route: 048
     Dates: end: 20070311
  7. MYCOPHENOLATE MOFETIL [Suspect]
     Route: 048
     Dates: start: 20070312, end: 20070313
  8. MYCOPHENOLATE MOFETIL [Suspect]
     Route: 048
     Dates: start: 20070314, end: 20070324
  9. MYCOPHENOLATE MOFETIL [Suspect]
     Route: 048
     Dates: start: 20070325, end: 20070327
  10. MYCOPHENOLATE MOFETIL [Suspect]
     Route: 048
     Dates: start: 20070328, end: 20070328
  11. MYCOPHENOLATE MOFETIL [Suspect]
     Route: 048
     Dates: start: 20070404, end: 20070404
  12. MYCOPHENOLATE MOFETIL [Suspect]
     Route: 048
     Dates: start: 20070405
  13. SOLU-MEDROL [Suspect]
     Indication: LIVER TRANSPLANT REJECTION
     Dosage: NOTE: 40 ~ 1000 MG
     Route: 042
     Dates: start: 20070404, end: 20070417
  14. MEDROL [Suspect]
     Route: 048
     Dates: end: 20060127
  15. MEDROL [Suspect]
     Route: 048
     Dates: start: 20070307, end: 20070404
  16. MEDROL [Suspect]
     Route: 048
     Dates: start: 20070418, end: 20070623
  17. PREDNISOLONE [Suspect]
     Route: 048
     Dates: start: 20070624
  18. PROGRAF [Concomitant]
     Dosage: NOTE: 1 ~ 2 MG
     Route: 048
  19. NEORAL [Concomitant]
     Route: 048
  20. ACTONEL [Concomitant]
     Dosage: DRUG REPORTED AS ACTONEL (SODIUM RISEDRONATE HYDRATE)
     Route: 048
     Dates: start: 20070418
  21. LASIX [Concomitant]
     Route: 048
     Dates: start: 20070220

REACTIONS (6)
  - AUTOIMMUNE HEPATITIS [None]
  - DIABETES MELLITUS [None]
  - GENERALISED OEDEMA [None]
  - HEPATIC VEIN STENOSIS [None]
  - LIVER DISORDER [None]
  - SPINAL COMPRESSION FRACTURE [None]
